FAERS Safety Report 24189517 (Version 1)
Quarter: 2024Q3

REPORT INFORMATION
  Report Type: Spontaneous
  Country: CA (occurrence: CA)
  Receive Date: 20240808
  Receipt Date: 20240808
  Transmission Date: 20241016
  Serious: Yes (Other)
  Sender: PFIZER
  Company Number: CA-PFIZER INC-202400230349

PATIENT
  Age: 35 Year
  Sex: Male

DRUGS (9)
  1. FILGRASTIM [Suspect]
     Active Substance: FILGRASTIM
  2. LIDOCAINE HYDROCHLORIDE [Suspect]
     Active Substance: LIDOCAINE HYDROCHLORIDE
     Indication: Local anaesthesia
  3. ACETAMINOPHEN [Suspect]
     Active Substance: ACETAMINOPHEN
  4. ERYTHROMYCIN [Suspect]
     Active Substance: ERYTHROMYCIN
  5. METOCLOPRAMIDE [Suspect]
     Active Substance: METOCLOPRAMIDE
  6. OLANZAPINE [Suspect]
     Active Substance: OLANZAPINE
  7. ONDANSETRON [Suspect]
     Active Substance: ONDANSETRON
  8. POLYETHYLENE GLYCOLS [Suspect]
     Active Substance: POLYETHYLENE GLYCOLS
  9. SENNOSIDES [Suspect]
     Active Substance: SENNOSIDES

REACTIONS (1)
  - Febrile neutropenia [Unknown]
